FAERS Safety Report 23469977 (Version 1)
Quarter: 2024Q1

REPORT INFORMATION
  Report Type: Spontaneous
  Country: FR (occurrence: FR)
  Receive Date: 20240202
  Receipt Date: 20240202
  Transmission Date: 20240410
  Serious: Yes (Hospitalization, Other)
  Sender: FDA-Public Use
  Company Number: None

PATIENT
  Age: 37 Year
  Sex: Female

DRUGS (7)
  1. PREGABALIN [Suspect]
     Active Substance: PREGABALIN
     Dosage: 600 MG, QD
     Dates: start: 2019
  2. PREGABALIN [Suspect]
     Active Substance: PREGABALIN
     Dosage: 4.2 G
     Dates: start: 20231128, end: 20231128
  3. ZOLPIDEM TARTRATE [Suspect]
     Active Substance: ZOLPIDEM TARTRATE
     Dosage: 10 MG, QD, AND IMV WHILE RECOVERING FROM COCAINE
     Dates: start: 2019
  4. BROMAZEPAM [Suspect]
     Active Substance: BROMAZEPAM
     Dosage: 6 MG, QD, AND IMV WHILE RECOVERING FROM COCAINE
     Dates: start: 2019
  5. METHADONE HYDROCHLORIDE [Suspect]
     Active Substance: METHADONE HYDROCHLORIDE
     Dosage: UNK
     Dates: start: 20231128, end: 20231128
  6. UNSPECIFIED INGREDIENT [Suspect]
     Active Substance: UNSPECIFIED INGREDIENT
     Dosage: 3 RAILS PER WEEK CURRENTLY
     Route: 045
     Dates: start: 2020
  7. COCAINE [Concomitant]
     Active Substance: COCAINE
     Dosage: 2 G, QD
     Route: 042
     Dates: start: 2002

REACTIONS (4)
  - Drug use disorder [Not Recovered/Not Resolved]
  - Substance use disorder [Not Recovered/Not Resolved]
  - Pneumonia aspiration [Recovering/Resolving]
  - Coma [Recovered/Resolved]

NARRATIVE: CASE EVENT DATE: 20020101
